FAERS Safety Report 5125120-8 (Version None)
Quarter: 2006Q4

REPORT INFORMATION
  Report Type: 
  Country: None (occurrence: None)
  Receive Date: 20061010
  Receipt Date: 20061010
  Transmission Date: 20070319
  Serious: Yes (Hospitalization)
  Sender: FDA-Public Use
  Company Number: None

PATIENT
  Age: 36 Year
  Sex: Female
  Weight: 58.9676 kg

DRUGS (1)
  1. BACTRIM DS [Suspect]
     Indication: ACNE
     Dosage: 1 PER DAY PO
     Route: 048
     Dates: start: 20060820, end: 20060919

REACTIONS (2)
  - GENITAL DISORDER FEMALE [None]
  - STEVENS-JOHNSON SYNDROME [None]
